FAERS Safety Report 4673073-9 (Version None)
Quarter: 2005Q2

REPORT INFORMATION
  Report Type: 
  Country: None (occurrence: None)
  Receive Date: 20050525
  Receipt Date: 20050517
  Transmission Date: 20051028
  Serious: Yes (Disabling, Congenital Anomaly)
  Sender: FDA-Public Use
  Company Number: PHRM2005FR01546

PATIENT
  Age: 0 Day
  Sex: Male

DRUGS (2)
  1. AREDIA [Suspect]
     Route: 064
  2. XELODA [Suspect]
     Route: 064

REACTIONS (4)
  - CONGENITAL ANOMALY [None]
  - DRUG EXPOSURE DURING PREGNANCY [None]
  - EAR MALFORMATION [None]
  - ENCHONDROMATOSIS [None]
